FAERS Safety Report 9699204 (Version 1)
Quarter: 2013Q4

REPORT INFORMATION
  Report Type: Spontaneous
  Country: US (occurrence: US)
  Receive Date: 20131120
  Receipt Date: 20131120
  Transmission Date: 20140711
  Serious: No
  Sender: FDA-Public Use
  Company Number: US-GILEAD-2008-0015114

PATIENT
  Sex: Female
  Weight: 113.4 kg

DRUGS (36)
  1. LETAIRIS [Suspect]
     Indication: PULMONARY ARTERIAL HYPERTENSION
     Route: 048
     Dates: start: 20080104, end: 20080124
  2. FLOLAN [Concomitant]
     Route: 042
  3. REVATIO [Concomitant]
     Route: 048
  4. COZAAR [Concomitant]
     Route: 048
  5. ATENOLOL [Concomitant]
     Route: 048
  6. OXYGEN [Concomitant]
     Route: 045
  7. ZAROXOLYN [Concomitant]
     Route: 048
  8. SPIRONOLACTONE [Concomitant]
     Route: 048
  9. BUMEX [Concomitant]
     Route: 048
  10. ASTELIN [Concomitant]
     Route: 055
  11. PREDNISONE [Concomitant]
     Route: 048
  12. RHINOCORT [Concomitant]
     Route: 045
  13. IMURAN [Concomitant]
     Route: 048
  14. COMPAZINE [Concomitant]
     Route: 048
  15. BONIVA [Concomitant]
     Route: 048
  16. REMERON [Concomitant]
     Route: 048
  17. TYLENOL EXTRA STRENGTH [Concomitant]
     Route: 048
  18. MORPHINE [Concomitant]
     Route: 048
  19. NEURONTIN [Concomitant]
     Route: 048
  20. OXYCONTIN [Concomitant]
     Route: 048
  21. HUMULIN N [Concomitant]
     Route: 058
  22. GLUCOTROL [Concomitant]
     Route: 048
  23. BYETTA [Concomitant]
     Route: 058
  24. HEPARIN [Concomitant]
     Route: 042
  25. LORAZEPAM [Concomitant]
     Route: 048
  26. TRAZADONE [Concomitant]
     Route: 048
  27. METHOCARBAMOL [Concomitant]
     Route: 048
  28. PLAQUENIL [Concomitant]
     Route: 048
  29. CELEXA [Concomitant]
     Route: 048
  30. PREVACID [Concomitant]
     Route: 048
  31. NYSTATIN [Concomitant]
     Route: 048
  32. LACTULOSE [Concomitant]
     Route: 048
  33. KLOR-CON [Concomitant]
     Route: 048
  34. OS-CAL [Concomitant]
     Route: 048
  35. MAG-OXIDE [Concomitant]
     Route: 048
  36. IRON [Concomitant]
     Route: 048

REACTIONS (2)
  - Inflammation [Unknown]
  - Nasal disorder [Unknown]
